FAERS Safety Report 19185707 (Version 2)
Quarter: 2021Q2

REPORT INFORMATION
  Report Type: Spontaneous
  Country: AT (occurrence: AT)
  Receive Date: 20210427
  Receipt Date: 20210511
  Transmission Date: 20210717
  Serious: Yes (Other)
  Sender: FDA-Public Use
  Company Number: AT-PFIZER INC-2021408825

PATIENT
  Age: 62 Year
  Sex: Female

DRUGS (2)
  1. AMOXICILLIN + CLAVULANIC ACID [Suspect]
     Active Substance: AMOXICILLIN\CLAVULANIC ACID
     Indication: PNEUMONIA
     Dosage: UNK
     Route: 065
     Dates: start: 202007
  2. AZITHROMYCIN ANHYDROUS. [Suspect]
     Active Substance: AZITHROMYCIN ANHYDROUS
     Dosage: 500 MG
     Route: 065

REACTIONS (10)
  - White blood cell count increased [Recovering/Resolving]
  - Lung opacity [Recovering/Resolving]
  - Bronchogram abnormal [Recovering/Resolving]
  - Antineutrophil cytoplasmic antibody positive [Recovering/Resolving]
  - Red blood cell sedimentation rate increased [Recovering/Resolving]
  - Drug ineffective [Recovering/Resolving]
  - Renal impairment [Recovering/Resolving]
  - C-reactive protein increased [Recovering/Resolving]
  - Lymphadenopathy mediastinal [Recovering/Resolving]
  - Hilar lymphadenopathy [Recovering/Resolving]
